FAERS Safety Report 8912020 (Version 4)
Quarter: 2014Q1

REPORT INFORMATION
  Report Type: Spontaneous
  Country: GB (occurrence: GB)
  Receive Date: 20121115
  Receipt Date: 20140128
  Transmission Date: 20141002
  Serious: Yes (Life-Threatening, Hospitalization)
  Sender: FDA-Public Use
  Company Number: GB-WATSON-2012-18997

PATIENT
  Age: 72 Year
  Sex: 0

DRUGS (9)
  1. CO-AMOXICLAV [Suspect]
     Indication: SEPSIS
     Dosage: 1.2 G, TID
     Route: 041
     Dates: start: 20110328, end: 20110403
  2. CEFUROXIME SODIUM (UNKNOWN) [Suspect]
     Indication: PRODUCT USED FOR UNKNOWN INDICATION
     Dosage: 1.5 G, TOTAL; PATIENT HAD 1 STAT DOSE
     Route: 041
     Dates: start: 20110308, end: 20110308
  3. PIPERACILLIN-TAZOBACTAM (UNKNOWN) [Suspect]
     Indication: PNEUMONIA
     Dosage: 4.5 G, TID
     Route: 041
     Dates: start: 20110420, end: 20110425
  4. METRONIDAZOLE (UNKNOWN) [Suspect]
     Indication: PRODUCT USED FOR UNKNOWN INDICATION
     Dosage: 500 MG, TID; 100 MG/20 ML SOLUTION FOR INFUSION AMPOULES. PATIENT HAD 1 DOSE
     Route: 041
     Dates: start: 20110308, end: 20110308
  5. MEROPENEM (UNKNOWN) [Suspect]
     Indication: PANCREATITIS NECROTISING
     Dosage: 1 G, TID
     Route: 041
     Dates: start: 20110309, end: 20110313
  6. ERYTHROMYCIN (UNKNOWN) [Suspect]
     Indication: PRODUCT USED FOR UNKNOWN INDICATION
     Dosage: 125 MG, TID; PRO KINETIC
     Route: 042
     Dates: start: 20110319, end: 20110321
  7. TRIMETHOPRIM (UNKNOWN) [Suspect]
     Indication: URINARY TRACT INFECTION
     Dosage: 200 MG, BID. PATIENT HAD 2 DOSES
     Route: 048
     Dates: start: 20110305, end: 20110305
  8. FLUCLOXACILLIN (UNKNOWN) [Suspect]
     Indication: PRODUCT USED FOR UNKNOWN INDICATION
     Dosage: 500 MG, QID
     Route: 048
     Dates: start: 20100908
  9. CEFTRIAXONE (UNKNOWN) [Suspect]
     Indication: PANCREATITIS
     Dosage: 1 G, DAILY; PATIENT HAD 1 DOSE
     Route: 041
     Dates: start: 20110308, end: 20110308

REACTIONS (1)
  - Clostridium test positive [Recovered/Resolved]
